FAERS Safety Report 4776598-0 (Version None)
Quarter: 2005Q3

REPORT INFORMATION
  Report Type: 
  Country: None (occurrence: None)
  Receive Date: 20050921
  Receipt Date: 20050908
  Transmission Date: 20060218
  Serious: Yes (Other)
  Sender: FDA-Public Use
  Company Number: 2005125960

PATIENT
  Age: 80 Year
  Sex: Male

DRUGS (2)
  1. ZITHROMAX [Suspect]
     Indication: RHINITIS PERENNIAL
     Dosage: 250 MG (250 MG, DAILY)
  2. LISINOPRIL [Concomitant]

REACTIONS (9)
  - BACTERIAL INFECTION [None]
  - BOWEL MOVEMENT IRREGULARITY [None]
  - CANDIDIASIS [None]
  - DIARRHOEA [None]
  - GASTRIC INFECTION [None]
  - LARGE INTESTINAL HAEMORRHAGE [None]
  - RESPIRATORY TRACT CONGESTION [None]
  - TONGUE DISCOLOURATION [None]
  - WEIGHT DECREASED [None]
